FAERS Safety Report 7394995-4 (Version None)
Quarter: 2011Q1

REPORT INFORMATION
  Report Type: 
  Country: None (occurrence: None)
  Receive Date: 20110331
  Receipt Date: 20110331
  Transmission Date: 20110831
  Serious: Yes (Hospitalization)
  Sender: FDA-Public Use
  Company Number: None

PATIENT
  Age: 45 Year
  Sex: Male
  Weight: 100.2 kg

DRUGS (2)
  1. LAMOTRIGINE [Suspect]
     Indication: DEPRESSION
     Dosage: 100 MG EVERY DAY PO
     Route: 048
     Dates: start: 20110214, end: 20110318
  2. LAMOTRIGINE [Suspect]
     Indication: MOOD SWINGS
     Dosage: 100 MG EVERY DAY PO
     Route: 048
     Dates: start: 20110214, end: 20110318

REACTIONS (3)
  - RASH [None]
  - URTICARIA [None]
  - PRURITUS [None]
